FAERS Safety Report 5646988-2 (Version None)
Quarter: 2008Q1

REPORT INFORMATION
  Report Type: 
  Country: None (occurrence: None)
  Receive Date: 20080303
  Receipt Date: 20080220
  Transmission Date: 20080703
  Serious: Yes (Hospitalization)
  Sender: FDA-Public Use
  Company Number: B0507570A

PATIENT
  Age: 76 Year
  Sex: Male

DRUGS (1)
  1. ALBENDAZOLE [Suspect]
     Dosage: 800MG PER DAY
     Route: 065

REACTIONS (1)
  - COGNITIVE DISORDER [None]
